FAERS Safety Report 20579185 (Version 7)
Quarter: 2024Q3

REPORT INFORMATION
  Report Type: Report from Study
  Country: GB (occurrence: GB)
  Receive Date: 20220310
  Receipt Date: 20240912
  Transmission Date: 20241017
  Serious: Yes (Other)
  Sender: NOVARTIS
  Company Number: GB-NOVARTISPH-NVSC2019GB010527

PATIENT
  Age: 62 Year
  Sex: Male

DRUGS (4)
  1. COSENTYX [Suspect]
     Active Substance: SECUKINUMAB
     Indication: Ankylosing spondylitis
     Dosage: 150 MG, QW
     Route: 058
     Dates: start: 20190910
  2. COSENTYX [Suspect]
     Active Substance: SECUKINUMAB
     Dosage: 150 MG, QMO
     Route: 058
     Dates: end: 202204
  3. METHOTREXATE [Suspect]
     Active Substance: METHOTREXATE
     Indication: Product used for unknown indication
     Dosage: 15 MG, QW
     Route: 058
  4. METHOTREXATE [Suspect]
     Active Substance: METHOTREXATE
     Dosage: 15 MG, QW
     Route: 058

REACTIONS (19)
  - Prostate cancer [Not Recovered/Not Resolved]
  - Ankylosing spondylitis [Recovering/Resolving]
  - Peripheral swelling [Unknown]
  - Musculoskeletal stiffness [Recovering/Resolving]
  - Pain in extremity [Unknown]
  - Back pain [Recovering/Resolving]
  - Neck pain [Unknown]
  - Arthralgia [Unknown]
  - Lower respiratory tract infection [Not Recovered/Not Resolved]
  - Fatigue [Not Recovered/Not Resolved]
  - Malaise [Not Recovered/Not Resolved]
  - Dyspnoea [Not Recovered/Not Resolved]
  - Vomiting [Not Recovered/Not Resolved]
  - Dysuria [Not Recovered/Not Resolved]
  - Dyspepsia [Recovering/Resolving]
  - Pain [Not Recovered/Not Resolved]
  - Abdominal pain upper [Not Recovered/Not Resolved]
  - Abdominal mass [Not Recovered/Not Resolved]
  - Injection site bruising [Not Recovered/Not Resolved]

NARRATIVE: CASE EVENT DATE: 20190901
